FAERS Safety Report 17117917 (Version 2)
Quarter: 2019Q4

REPORT INFORMATION
  Report Type: Report from Study
  Country: RU (occurrence: RU)
  Receive Date: 20191205
  Receipt Date: 20191216
  Transmission Date: 20200122
  Serious: Yes (Life-Threatening, Hospitalization)
  Sender: FDA-Public Use
  Company Number: RU-REGENERON PHARMACEUTICALS, INC.-2019-70697

PATIENT

DRUGS (3)
  1. CEMIPLIMAB [Suspect]
     Active Substance: CEMIPLIMAB
     Indication: NON-SMALL CELL LUNG CANCER STAGE IIIB
     Dosage: 350 MG, Q3W
     Route: 042
     Dates: start: 20180117, end: 20191111
  2. HEPTOR [Concomitant]
     Indication: HYPERBILIRUBINAEMIA
     Dosage: 400 MG, BID
     Route: 048
     Dates: start: 20191111
  3. CHOPHYTOL [Concomitant]
     Indication: HYPERBILIRUBINAEMIA
     Dosage: 2 TABLETS, TID
     Route: 048
     Dates: start: 20191111

REACTIONS (1)
  - Immune-mediated hepatitis [Not Recovered/Not Resolved]

NARRATIVE: CASE EVENT DATE: 20191202
